FAERS Safety Report 4352266-4 (Version None)
Quarter: 2004Q2

REPORT INFORMATION
  Report Type: 
  Country: None (occurrence: None)
  Receive Date: 20040415
  Receipt Date: 20040129
  Transmission Date: 20050107
  Serious: Yes (Other)
  Sender: FDA-Public Use
  Company Number: 04-030-0092

PATIENT
  Age: 53 Year
  Sex: Female

DRUGS (3)
  1. DOXORUBICIN, BEN VENUE LABS [Suspect]
     Indication: CARCINOMA
     Dosage: 40.6 MG, IV, ONCE WEEKLY
     Route: 042
     Dates: start: 20040108
  2. HERCEPTIN AND CARBOPLATIN [Concomitant]
  3. INSULIN [Concomitant]

REACTIONS (1)
  - NEUROPATHY PERIPHERAL [None]
